FAERS Safety Report 7170507-5 (Version None)
Quarter: 2010Q4

REPORT INFORMATION
  Report Type: 
  Country: None (occurrence: None)
  Receive Date: 20101217
  Receipt Date: 20101206
  Transmission Date: 20110411
  Serious: Yes (Other)
  Sender: FDA-Public Use
  Company Number: PHHY2010US83366

PATIENT
  Sex: Male
  Weight: 64.399 kg

DRUGS (1)
  1. AFINITOR [Suspect]
     Indication: NEOPLASM MALIGNANT
     Dosage: 10 MG, QD
     Route: 048
     Dates: start: 20101001, end: 20101101

REACTIONS (2)
  - ALOPECIA [None]
  - MALIGNANT NEOPLASM PROGRESSION [None]
